FAERS Safety Report 8131312-6 (Version None)
Quarter: 2012Q1

REPORT INFORMATION
  Report Type: 
  Country: None (occurrence: None)
  Receive Date: 20120213
  Receipt Date: 20120203
  Transmission Date: 20120608
  Serious: Yes (Other)
  Sender: FDA-Public Use
  Company Number: ES-PERRIGO-12ES001007

PATIENT
  Age: 39 Year
  Sex: Female

DRUGS (2)
  1. CETIRIZINE HCL [Suspect]
     Indication: CONJUNCTIVITIS
  2. CETIRIZINE HCL [Suspect]
     Indication: NASOPHARYNGITIS
     Dosage: 10 MG, QD
     Route: 048

REACTIONS (7)
  - PRURITUS [None]
  - BILE OUTPUT ABNORMAL [None]
  - HEPATITIS TOXIC [None]
  - CHROMATURIA [None]
  - RASH [None]
  - JAUNDICE [None]
  - ARTHRALGIA [None]
